FAERS Safety Report 15833859 (Version 2)
Quarter: 2019Q1

REPORT INFORMATION
  Report Type: Report from Study
  Country: BE (occurrence: BE)
  Receive Date: 20190116
  Receipt Date: 20190130
  Transmission Date: 20190417
  Serious: Yes (Hospitalization, Other)
  Sender: FDA-Public Use
  Company Number: BE-ASPEN-GLO2014BE014970

PATIENT
  Age: 24 Year
  Sex: Female
  Weight: 50 kg

DRUGS (12)
  1. VINDESINE [Suspect]
     Active Substance: VINDESINE
     Indication: ACUTE LYMPHOCYTIC LEUKAEMIA
     Dosage: 4 MG,UNK
     Route: 042
     Dates: start: 20140224, end: 20140310
  2. METHOTREXATE. [Concomitant]
     Active Substance: METHOTREXATE
     Indication: PRODUCT USED FOR UNKNOWN INDICATION
     Dosage: 15 MG
     Route: 065
     Dates: start: 20130823, end: 20130830
  3. DEXAMETHASONE. [Suspect]
     Active Substance: DEXAMETHASONE
     Indication: ACUTE LYMPHOCYTIC LEUKAEMIA
     Dosage: 10 MG
     Route: 048
  4. DAUNORUBICIN [Concomitant]
     Active Substance: DAUNORUBICIN
     Indication: PRODUCT USED FOR UNKNOWN INDICATION
     Dosage: 40 MG, UNK
     Route: 065
     Dates: start: 20130823, end: 20130830
  5. ADRIAMYCIN [Suspect]
     Active Substance: DOXORUBICIN HYDROCHLORIDE
     Indication: PRODUCT USED FOR UNKNOWN INDICATION
     Dosage: 38.25 MG
     Route: 042
     Dates: start: 20140224, end: 20140310
  6. TIOGUANINE [Suspect]
     Active Substance: THIOGUANINE ANHYDROUS
     Indication: ACUTE LYMPHOCYTIC LEUKAEMIA
     Dosage: 91.8 MG
     Route: 048
     Dates: start: 20140304, end: 20140326
  7. CLOFARABINE. [Suspect]
     Active Substance: CLOFARABINE
     Indication: ACUTE LYMPHOCYTIC LEUKAEMIA
     Dosage: 20 MG/M2, QD
     Route: 042
     Dates: start: 20140120, end: 20140124
  8. CYTARABINE. [Suspect]
     Active Substance: CYTARABINE
     Indication: PRODUCT USED FOR UNKNOWN INDICATION
     Dosage: 45.9 MG
     Route: 058
     Dates: start: 20140324, end: 20140325
  9. CLOFARABINE. [Suspect]
     Active Substance: CLOFARABINE
     Dosage: UNK
     Route: 042
  10. PEGASPARGASE [Suspect]
     Active Substance: PEGASPARGASE
     Indication: ACUTE LYMPHOCYTIC LEUKAEMIA
     Dosage: 1530 MG
     Route: 042
     Dates: start: 20140227, end: 20140313
  11. VINCRISTINE [Concomitant]
     Active Substance: VINCRISTINE
     Indication: PRODUCT USED FOR UNKNOWN INDICATION
     Dosage: 1.5 MG
     Route: 065
     Dates: start: 20130816, end: 20130830
  12. ETOPOSIDE. [Suspect]
     Active Substance: ETOPOSIDE
     Indication: PRODUCT USED FOR UNKNOWN INDICATION
     Dosage: 229.5 MG
     Route: 042
     Dates: start: 20140324, end: 20140324

REACTIONS (10)
  - Pyrexia [Unknown]
  - Nausea [Unknown]
  - Gastrointestinal bacterial infection [Recovered/Resolved]
  - Disseminated intravascular coagulation [Recovered/Resolved]
  - Vomiting [Recovered/Resolved]
  - Cytomegalovirus infection [Recovered/Resolved]
  - Device related infection [Recovered/Resolved]
  - Staphylococcal sepsis [Recovered/Resolved]
  - Septic shock [Recovered/Resolved]
  - Septic shock [Recovered/Resolved]

NARRATIVE: CASE EVENT DATE: 20130905
